FAERS Safety Report 10968748 (Version 4)
Quarter: 2015Q2

REPORT INFORMATION
  Report Type: Other
  Country: GB (occurrence: GB)
  Receive Date: 20150330
  Receipt Date: 20150521
  Transmission Date: 20150821
  Serious: Yes (Death, Other)
  Sender: FDA-Public Use
  Company Number: GB-LUPIN PHARMACEUTICALS INC.-E2B_00003267

PATIENT
  Age: 39 Year
  Sex: Female

DRUGS (13)
  1. QUETIAPINE [Suspect]
     Active Substance: QUETIAPINE
     Dosage: 400MG ONCE AT NIGHT, PLUS 25-50MG THREE TIMES DAILY /AS REQUIRED
     Route: 065
     Dates: start: 20150204, end: 201502
  2. LORAZEPAM. [Concomitant]
     Active Substance: LORAZEPAM
     Indication: DEPRESSION
     Dosage: 1MG TWICE DAILY / AS NECESSARY FOR 3 DAYS
     Route: 065
  3. QUETIAPINE [Suspect]
     Active Substance: QUETIAPINE
     Indication: BIPOLAR DISORDER
     Route: 065
  4. MIRTAZAPINE. [Suspect]
     Active Substance: MIRTAZAPINE
     Indication: PRODUCT USED FOR UNKNOWN INDICATION
     Route: 065
  5. QUETIAPINE [Suspect]
     Active Substance: QUETIAPINE
     Dosage: 300MG
     Route: 065
  6. LORAZEPAM. [Concomitant]
     Active Substance: LORAZEPAM
     Indication: ANXIETY
     Dosage: 0.5-1MG TWICE DAILY / AS NECESSARY FOR 3 DAYS
     Route: 065
     Dates: start: 20150204
  7. LAMOTRIGINE. [Suspect]
     Active Substance: LAMOTRIGINE
     Indication: BIPOLAR DISORDER
     Route: 048
     Dates: start: 20121015
  8. LAMOTRIGINE. [Suspect]
     Active Substance: LAMOTRIGINE
     Route: 048
     Dates: start: 20150106
  9. LAMOTRIGINE. [Suspect]
     Active Substance: LAMOTRIGINE
     Route: 048
     Dates: start: 201501
  10. QUETIAPINE [Suspect]
     Active Substance: QUETIAPINE
     Route: 065
  11. LAMOTRIGINE. [Suspect]
     Active Substance: LAMOTRIGINE
     Route: 048
     Dates: start: 20150207, end: 20150209
  12. QUETIAPINE [Suspect]
     Active Substance: QUETIAPINE
     Indication: MANIA
     Dosage: 600MG
     Route: 065
     Dates: start: 2011, end: 20121015
  13. QUETIAPINE [Suspect]
     Active Substance: QUETIAPINE
     Dosage: 500MG ONCE AT NIGHT PLUS 25-50MG THREE TIMES DAILY / AS NECESSARY
     Route: 065
     Dates: start: 201502

REACTIONS (6)
  - Seizure [Not Recovered/Not Resolved]
  - Cardiac arrest [Fatal]
  - Persecutory delusion [Not Recovered/Not Resolved]
  - Depression [Not Recovered/Not Resolved]
  - Overdose [Fatal]
  - Paranoia [Not Recovered/Not Resolved]

NARRATIVE: CASE EVENT DATE: 20150204
